FAERS Safety Report 22053533 (Version 1)
Quarter: 2023Q1

REPORT INFORMATION
  Report Type: Spontaneous
  Country: CA (occurrence: None)
  Receive Date: 20230301
  Receipt Date: 20230301
  Transmission Date: 20230418
  Serious: Yes (unspecified)
  Sender: FDA-Public Use
  Company Number: None

PATIENT
  Age: 35 Year
  Sex: Female

DRUGS (1)
  1. CHLORHEXIDINE [Suspect]
     Active Substance: CHLORHEXIDINE
     Dates: start: 20210411, end: 20210411

REACTIONS (6)
  - Dermatitis allergic [None]
  - Rash [None]
  - Abdominal distension [None]
  - Swelling [None]
  - Application site swelling [None]
  - Cellulitis [None]

NARRATIVE: CASE EVENT DATE: 20210413
